FAERS Safety Report 6356986-1 (Version None)
Quarter: 2009Q3

REPORT INFORMATION
  Report Type: 
  Country: None (occurrence: None)
  Receive Date: 20090915
  Receipt Date: 20090909
  Transmission Date: 20100115
  Serious: Yes (Other)
  Sender: FDA-Public Use
  Company Number: US-AMGEN-US363624

PATIENT
  Sex: Female

DRUGS (8)
  1. NPLATE [Suspect]
     Indication: IDIOPATHIC THROMBOCYTOPENIC PURPURA
  2. CALCIUM CARBONATE [Concomitant]
  3. HYDROCHLOROTHIAZIDE [Concomitant]
  4. LANTUS [Concomitant]
  5. HUMALOG [Concomitant]
  6. LEVOTHYROXINE SODIUM [Concomitant]
  7. GLYBURIDE AND METFORMIN HCL [Concomitant]
  8. VALSARTAN [Concomitant]

REACTIONS (1)
  - PLATELET COUNT DECREASED [None]
